FAERS Safety Report 8819841 (Version 1)
Quarter: 2012Q4

REPORT INFORMATION
  Report Type: 
  Country: US (occurrence: US)
  Receive Date: 20121002
  Receipt Date: 20121002
  Transmission Date: 20130627
  Serious: No
  Sender: FDA-Public Use
  Company Number: US-009507513-1210USA000544

PATIENT
  Sex: Female

DRUGS (5)
  1. FOSAMAX PLUS D [Suspect]
     Indication: OSTEOPOROSIS
     Dosage: UNK
     Dates: start: 200809, end: 201202
  2. SYNTHROID [Concomitant]
  3. LOTREL [Concomitant]
  4. LEXAPRO [Concomitant]
  5. DURAGESIC [Concomitant]

REACTIONS (2)
  - Alopecia [Not Recovered/Not Resolved]
  - Bone pain [Not Recovered/Not Resolved]
